FAERS Safety Report 5702886-7 (Version None)
Quarter: 2008Q2

REPORT INFORMATION
  Report Type: 
  Country: None (occurrence: None)
  Receive Date: 20080408
  Receipt Date: 20080325
  Transmission Date: 20081010
  Serious: Yes (Other)
  Sender: FDA-Public Use
  Company Number: 230006M08ESP

PATIENT
  Sex: Male

DRUGS (1)
  1. REBIF [Suspect]

REACTIONS (1)
  - GENERALISED ERYTHEMA [None]
